FAERS Safety Report 4741767-2 (Version None)
Quarter: 2005Q3

REPORT INFORMATION
  Report Type: 
  Country: None (occurrence: None)
  Receive Date: 20050804
  Receipt Date: 20050519
  Transmission Date: 20060218
  Serious: No
  Sender: FDA-Public Use
  Company Number: WAES 0505USA02415

PATIENT
  Sex: Male

DRUGS (4)
  1. EMEND [Suspect]
     Indication: POST PROCEDURAL NAUSEA
     Dosage: SEE IMAGE
     Route: 048
  2. EMEND [Suspect]
     Indication: POST PROCEDURAL VOMITING
     Dosage: SEE IMAGE
     Route: 048
  3. EMEND [Suspect]
     Indication: POST PROCEDURAL NAUSEA
     Dosage: SEE IMAGE
     Route: 048
  4. EMEND [Suspect]
     Indication: POST PROCEDURAL VOMITING
     Dosage: SEE IMAGE
     Route: 048

REACTIONS (2)
  - DRUG ADMINISTRATION ERROR [None]
  - NAUSEA [None]
